FAERS Safety Report 17470516 (Version 2)
Quarter: 2020Q2

REPORT INFORMATION
  Report Type: Spontaneous
  Country: US (occurrence: US)
  Receive Date: 20200228
  Receipt Date: 20200611
  Transmission Date: 20200713
  Serious: Yes (Death, Hospitalization, Other)
  Sender: FDA-Public Use
  Company Number: US-009507513-2002USA010090

PATIENT
  Sex: Male
  Weight: 94.33 kg

DRUGS (1)
  1. JANUVIA [Suspect]
     Active Substance: SITAGLIPTIN PHOSPHATE
     Indication: TYPE 2 DIABETES MELLITUS
     Dosage: 100 MILLIGRAM,, ONCE DAILY
     Route: 065
     Dates: start: 20161128, end: 20180607

REACTIONS (9)
  - Death [Fatal]
  - Sepsis [Unknown]
  - Pancreatic carcinoma metastatic [Unknown]
  - Ascites [Unknown]
  - Urinary tract infection [Unknown]
  - Malignant peritoneal neoplasm [Unknown]
  - Diverticulitis [Unknown]
  - Gastrooesophageal reflux disease [Unknown]
  - Chronic gastritis [Unknown]

NARRATIVE: CASE EVENT DATE: 201806
